FAERS Safety Report 21827320 (Version 2)
Quarter: 2023Q1

REPORT INFORMATION
  Report Type: Report from Study
  Country: US (occurrence: US)
  Receive Date: 20230106
  Receipt Date: 20230223
  Transmission Date: 20230418
  Serious: No
  Sender: FDA-Public Use
  Company Number: US-ABBVIE-22K-163-4296403-00

PATIENT
  Sex: Male

DRUGS (4)
  1. IMBRUVICA [Suspect]
     Active Substance: IBRUTINIB
     Indication: Chronic lymphocytic leukaemia
     Route: 048
     Dates: start: 20211013
  2. IMBRUVICA [Suspect]
     Active Substance: IBRUTINIB
     Indication: Chronic lymphocytic leukaemia
     Route: 048
  3. IMBRUVICA [Suspect]
     Active Substance: IBRUTINIB
     Indication: Chronic lymphocytic leukaemia
     Route: 048
     Dates: start: 202110
  4. IMBRUVICA [Suspect]
     Active Substance: IBRUTINIB
     Indication: Chronic lymphocytic leukaemia
     Route: 048

REACTIONS (15)
  - Liver disorder [Unknown]
  - Conjunctivitis [Unknown]
  - Eye discharge [Unknown]
  - Lacrimation increased [Unknown]
  - Fall [Unknown]
  - Tooth disorder [Unknown]
  - Laryngitis [Unknown]
  - Influenza [Unknown]
  - Glossodynia [Unknown]
  - Sinusitis [Unknown]
  - Anaemia [Unknown]
  - Nasopharyngitis [Unknown]
  - Dizziness [Unknown]
  - Asthenia [Unknown]
  - Lower limb fracture [Unknown]
